FAERS Safety Report 7284580-7 (Version None)
Quarter: 2011Q1

REPORT INFORMATION
  Report Type: 
  Country: None (occurrence: None)
  Receive Date: 20110210
  Receipt Date: 20110202
  Transmission Date: 20110831
  Serious: Yes (Hospitalization)
  Sender: FDA-Public Use
  Company Number: US-BIOGENIDEC-2010BI030091

PATIENT
  Sex: Male

DRUGS (1)
  1. AVONEX [Suspect]
     Indication: MULTIPLE SCLEROSIS
     Route: 030
     Dates: start: 19980119, end: 20100601

REACTIONS (5)
  - MARBURG'S VARIANT MULTIPLE SCLEROSIS [None]
  - BRADYPHRENIA [None]
  - CONVULSION [None]
  - COGNITIVE DISORDER [None]
  - PNEUMONIA [None]
